FAERS Safety Report 17376890 (Version 1)
Quarter: 2020Q1

REPORT INFORMATION
  Report Type: Spontaneous
  Country: US (occurrence: US)
  Receive Date: 20200121
  Receipt Date: 20200121
  Transmission Date: 20200409
  Serious: Yes (Hospitalization)
  Sender: FDA-Public Use
  Company Number: None

PATIENT
  Age: 71 Year
  Sex: Female
  Weight: 66 kg

DRUGS (3)
  1. GEMCITABINE HYDROCHLORIDE. [Suspect]
     Active Substance: GEMCITABINE HYDROCHLORIDE
     Dates: end: 20200107
  2. CISPLATIN. [Suspect]
     Active Substance: CISPLATIN
     Dates: end: 20200107
  3. PACLITAXEL PROTEIN-BOUND PARTICLES [Suspect]
     Active Substance: PACLITAXEL
     Dates: end: 20200107

REACTIONS (12)
  - Fatigue [None]
  - Decreased appetite [None]
  - Sinus tachycardia [None]
  - Febrile neutropenia [None]
  - Abdominal pain [None]
  - Atrial fibrillation [None]
  - Portal vein thrombosis [None]
  - Asthenia [None]
  - Enterocolitis [None]
  - Diarrhoea [None]
  - Chills [None]
  - Pancytopenia [None]

NARRATIVE: CASE EVENT DATE: 20200112
